FAERS Safety Report 17868358 (Version 2)
Quarter: 2020Q2

REPORT INFORMATION
  Report Type: Spontaneous
  Country: CN (occurrence: CN)
  Receive Date: 20200606
  Receipt Date: 20200615
  Transmission Date: 20200714
  Serious: Yes (Other)
  Sender: FDA-Public Use
  Company Number: CN-ROCHE-2613788

PATIENT
  Age: 68 Year
  Sex: Male

DRUGS (2)
  1. OXALIPLATIN. [Concomitant]
     Active Substance: OXALIPLATIN
     Indication: METASTATIC GASTRIC CANCER
     Dosage: DAY 1, PER 3 WEEKS A CYCLE
     Route: 065
     Dates: start: 20191030
  2. CAPECITABINE. [Suspect]
     Active Substance: CAPECITABINE
     Indication: METASTATIC GASTRIC CANCER
     Dosage: DAY 1-14, PER 3 WEEKS A CYCLE
     Route: 048
     Dates: start: 20191030

REACTIONS (3)
  - Transaminases increased [Recovering/Resolving]
  - Liver injury [Recovering/Resolving]
  - Gastrointestinal disorder [Recovering/Resolving]
